FAERS Safety Report 18277036 (Version 3)
Quarter: 2020Q4

REPORT INFORMATION
  Report Type: Spontaneous
  Country: JP (occurrence: JP)
  Receive Date: 20200917
  Receipt Date: 20201218
  Transmission Date: 20210113
  Serious: Yes (Death, Hospitalization, Other)
  Sender: FDA-Public Use
  Company Number: JP-ASTELLAS-2020JP013788

PATIENT
  Age: 81 Year
  Sex: Male
  Weight: 57 kg

DRUGS (9)
  1. XTANDI [Suspect]
     Active Substance: ENZALUTAMIDE
     Route: 048
     Dates: start: 20181004, end: 20190109
  2. FLUTAMIDE. [Concomitant]
     Active Substance: FLUTAMIDE
     Indication: HORMONE-REFRACTORY PROSTATE CANCER
     Route: 048
     Dates: start: 20180517, end: 20180711
  3. GONAX [Suspect]
     Active Substance: DEGARELIX
     Indication: HORMONE-REFRACTORY PROSTATE CANCER
     Route: 058
     Dates: start: 20160208, end: 20160208
  4. BICALUTAMIDE. [Concomitant]
     Active Substance: BICALUTAMIDE
     Indication: HORMONE-REFRACTORY PROSTATE CANCER
     Route: 048
     Dates: start: 20160108, end: 20180228
  5. XTANDI [Suspect]
     Active Substance: ENZALUTAMIDE
     Indication: HORMONE-REFRACTORY PROSTATE CANCER
     Route: 048
     Dates: start: 20180803, end: 20180808
  6. GONAX [Suspect]
     Active Substance: DEGARELIX
     Route: 058
     Dates: start: 20160307, end: 20181205
  7. LOXOPROFEN [Concomitant]
     Active Substance: LOXOPROFEN
     Indication: INJECTION SITE REACTION
     Route: 048
     Dates: start: 20170508
  8. XTANDI [Suspect]
     Active Substance: ENZALUTAMIDE
     Route: 048
     Dates: start: 20180809, end: 20181003
  9. BETANIS [Concomitant]
     Active Substance: MIRABEGRON
     Indication: HYPERTONIC BLADDER
     Route: 048
     Dates: start: 20160212

REACTIONS (5)
  - Prostate cancer [Fatal]
  - Acute kidney injury [Not Recovered/Not Resolved]
  - Blood loss anaemia [Not Recovered/Not Resolved]
  - Injection site reaction [Unknown]
  - Bladder tamponade [Not Recovered/Not Resolved]

NARRATIVE: CASE EVENT DATE: 20170508
